FAERS Safety Report 16118508 (Version 2)
Quarter: 2019Q2

REPORT INFORMATION
  Report Type: Spontaneous
  Country: US (occurrence: US)
  Receive Date: 20190326
  Receipt Date: 20190426
  Transmission Date: 20190711
  Serious: No
  Sender: FDA-Public Use
  Company Number: US-009507513-1903USA001702

PATIENT
  Age: 72 Year
  Sex: Male

DRUGS (9)
  1. INTRON A [Suspect]
     Active Substance: INTERFERON ALFA-2B
     Indication: MALIGNANT NEOPLASM OF CONJUNCTIVA
     Dosage: STRENGTH: 1 MILLION IU 1CC, 1 GTT OD
     Route: 061
     Dates: start: 20181001
  2. WELLBUTRIN [Concomitant]
     Active Substance: BUPROPION HYDROCHLORIDE
     Route: 048
  3. PLAVIX [Concomitant]
     Active Substance: CLOPIDOGREL BISULFATE
     Route: 048
  4. STERILE WATER [Concomitant]
     Active Substance: WATER
  5. INTRON A [Suspect]
     Active Substance: INTERFERON ALFA-2B
     Indication: OCULAR SURFACE SQUAMOUS NEOPLASIA
  6. CRESTOR [Concomitant]
     Active Substance: ROSUVASTATIN CALCIUM
     Route: 048
  7. LOSARTAN. [Concomitant]
     Active Substance: LOSARTAN
     Route: 048
  8. METFORMIN [Concomitant]
     Active Substance: METFORMIN HYDROCHLORIDE
     Route: 048
  9. PROVIGIL [Concomitant]
     Active Substance: MODAFINIL
     Route: 048

REACTIONS (4)
  - Product use issue [Unknown]
  - Alopecia [Unknown]
  - Product use in unapproved indication [Unknown]
  - Product prescribing error [Unknown]

NARRATIVE: CASE EVENT DATE: 20181001
